FAERS Safety Report 22181013 (Version 1)
Quarter: 2023Q2

REPORT INFORMATION
  Report Type: Spontaneous
  Country: US (occurrence: US)
  Receive Date: 20230406
  Receipt Date: 20230406
  Transmission Date: 20230722
  Serious: Yes (Hospitalization)
  Sender: FDA-Public Use
  Company Number: US-BIOVITRUM-2023-US-008499

PATIENT
  Age: 1 Year
  Sex: Female

DRUGS (4)
  1. SYNAGIS [Suspect]
     Active Substance: PALIVIZUMAB
     Indication: Congenital diaphragmatic hernia
     Dosage: ONE TIME PER MONTH
     Route: 030
     Dates: start: 20221115
  2. SYNAGIS [Suspect]
     Active Substance: PALIVIZUMAB
     Indication: Bone marrow failure
  3. SYNAGIS [Suspect]
     Active Substance: PALIVIZUMAB
     Indication: Dysplasia
  4. SYNAGIS [Suspect]
     Active Substance: PALIVIZUMAB
     Indication: Malformation venous

REACTIONS (1)
  - Respiratory syncytial virus infection [Unknown]
